FAERS Safety Report 17555038 (Version 1)
Quarter: 2020Q1

REPORT INFORMATION
  Report Type: Spontaneous
  Country: US (occurrence: US)
  Receive Date: 20200318
  Receipt Date: 20200318
  Transmission Date: 20200409
  Serious: No
  Sender: FDA-Public Use
  Company Number: US-JNJFOC-20200309243

PATIENT
  Sex: Male

DRUGS (1)
  1. REMICADE [Suspect]
     Active Substance: INFLIXIMAB
     Indication: COLITIS ULCERATIVE
     Dosage: REPORTED AS 8 YEARS AGO
     Route: 042
     Dates: start: 2012

REACTIONS (3)
  - Bone loss [Not Recovered/Not Resolved]
  - Tooth extraction [Unknown]
  - Dental implantation [Unknown]

NARRATIVE: CASE EVENT DATE: 2020
